FAERS Safety Report 5274008-0 (Version None)
Quarter: 2007Q1

REPORT INFORMATION
  Report Type: 
  Country: None (occurrence: None)
  Receive Date: 20070323
  Receipt Date: 20070313
  Transmission Date: 20070707
  Serious: Yes (Life-Threatening)
  Sender: FDA-Public Use
  Company Number: FR-GLAXOSMITHKLINE-B0462379A

PATIENT
  Age: 74 Year
  Sex: Male
  Weight: 75 kg

DRUGS (7)
  1. ALKERAN [Suspect]
     Indication: MULTIPLE MYELOMA
     Route: 065
     Dates: start: 20040401
  2. ENDOXAN [Suspect]
     Indication: MULTIPLE MYELOMA
     Route: 048
     Dates: start: 20060401, end: 20060601
  3. THALIDOMIDE [Suspect]
     Indication: MULTIPLE MYELOMA
     Route: 048
     Dates: start: 20041101, end: 20050101
  4. VELCADE [Suspect]
     Indication: MULTIPLE MYELOMA
     Route: 042
     Dates: start: 20050901, end: 20060201
  5. DEXAMETHASONE [Concomitant]
     Indication: MULTIPLE MYELOMA
     Dates: start: 20040401
  6. ZOMETA [Concomitant]
     Indication: MULTIPLE MYELOMA
     Dates: start: 20040401
  7. RADIOTHERAPY [Concomitant]
     Indication: MULTIPLE MYELOMA
     Dates: start: 20060301

REACTIONS (3)
  - ACUTE LEUKAEMIA [None]
  - MULTIPLE MYELOMA [None]
  - MYELOCYTOSIS [None]
